FAERS Safety Report 9310621 (Version 2)
Quarter: 2013Q2

REPORT INFORMATION
  Report Type: Spontaneous
  Country: US (occurrence: US)
  Receive Date: 20130527
  Receipt Date: 20130613
  Transmission Date: 20140414
  Serious: Yes (Hospitalization)
  Sender: FDA-Public Use
  Company Number: US-BRISTOL-MYERS SQUIBB COMPANY-18940890

PATIENT
  Age: 79 Year
  Sex: Female

DRUGS (9)
  1. KOMBIGLYZE XR [Suspect]
     Indication: DIABETES MELLITUS
     Dosage: 1DF: 50-1000 MG
     Route: 048
     Dates: start: 201303, end: 201305
  2. JANUMET [Suspect]
     Indication: DIABETES MELLITUS
     Dosage: 1DF: 50-1000 UNITS NOS
     Route: 048
     Dates: start: 20130313, end: 20130513
  3. LANTUS [Concomitant]
  4. AMLODIPINE [Concomitant]
  5. METOPROLOL [Concomitant]
  6. SIMVASTATIN [Concomitant]
  7. BENICAR [Concomitant]
  8. LISINOPRIL [Concomitant]
  9. LEVOTHYROXINE [Concomitant]

REACTIONS (2)
  - Dehydration [Recovering/Resolving]
  - Diarrhoea [Recovering/Resolving]
